FAERS Safety Report 16736245 (Version 1)
Quarter: 2019Q4

REPORT INFORMATION
  Report Type: Spontaneous
  Country: US (occurrence: US)
  Receive Date: 20190823
  Receipt Date: 20190823
  Transmission Date: 20200122
  Serious: Yes (Other)
  Sender: FDA-Public Use
  Company Number: None

PATIENT
  Age: 59 Year
  Sex: Female
  Weight: 118.8 kg

DRUGS (12)
  1. ALOE VERA [Concomitant]
     Active Substance: ALOE VERA LEAF
  2. FUROSEMIDE. [Concomitant]
     Active Substance: FUROSEMIDE
  3. BACLOFEN. [Suspect]
     Active Substance: BACLOFEN
     Indication: MUSCLE SPASMS
  4. GILOTRIF [Concomitant]
     Active Substance: AFATINIB
  5. HYDROCODONE-CHLORPHENIRAMINE [Concomitant]
  6. AZITHROMYCIN ANHYDROUS. [Concomitant]
     Active Substance: AZITHROMYCIN ANHYDROUS
  7. KLOR-CON [Concomitant]
     Active Substance: POTASSIUM CHLORIDE
  8. PRILOSEC [Concomitant]
     Active Substance: OMEPRAZOLE MAGNESIUM
  9. CENTRUM [Concomitant]
     Active Substance: VITAMINS
  10. RANITIDINE. [Concomitant]
     Active Substance: RANITIDINE
  11. VITAMIN B12 [Concomitant]
     Active Substance: CYANOCOBALAMIN
  12. LOPERAMIDE [Concomitant]
     Active Substance: LOPERAMIDE

REACTIONS (3)
  - Gait disturbance [None]
  - Dysarthria [None]
  - Hallucination [None]

NARRATIVE: CASE EVENT DATE: 20190819
